FAERS Safety Report 24308893 (Version 1)
Quarter: 2024Q3

REPORT INFORMATION
  Report Type: Spontaneous
  Country: US (occurrence: None)
  Receive Date: 20240911
  Receipt Date: 20240911
  Transmission Date: 20241016
  Serious: Yes (Death)
  Sender: Public
  Company Number: None

PATIENT
  Age: 56 Year
  Sex: Male
  Weight: 70.3 kg

DRUGS (3)
  1. CLOZAPINE [Suspect]
     Active Substance: CLOZAPINE
     Indication: Schizophrenia
     Dosage: FREQUENCY : DAILY;?
     Route: 048
     Dates: end: 20240831
  2. CARBOPLATIN [Suspect]
     Active Substance: CARBOPLATIN
     Dosage: FREQUENCY : ONCE;?
  3. ETOPOSIDE [Suspect]
     Active Substance: ETOPOSIDE
     Dosage: OTHER FREQUENCY : 3 DOSES OVER 3 DAYS;?

REACTIONS (6)
  - Septic shock [None]
  - Pancytopenia [None]
  - Acute respiratory failure [None]
  - Pneumonia [None]
  - Neoplasm recurrence [None]
  - Non-small cell lung cancer [None]

NARRATIVE: CASE EVENT DATE: 20240826
